FAERS Safety Report 5353046-3 (Version None)
Quarter: 2007Q2

REPORT INFORMATION
  Report Type: 
  Country: None (occurrence: None)
  Receive Date: 20070606
  Receipt Date: 20070511
  Transmission Date: 20071010
  Serious: Yes (Hospitalization)
  Sender: FDA-Public Use
  Company Number: ENTC2007-0046(1)

PATIENT
  Sex: Male

DRUGS (1)
  1. STALEVO 100 [Suspect]

REACTIONS (1)
  - NO ADVERSE EFFECT [None]
